FAERS Safety Report 6256028-2 (Version None)
Quarter: 2009Q2

REPORT INFORMATION
  Report Type: 
  Country: None (occurrence: None)
  Receive Date: 20090630
  Receipt Date: 20090630
  Transmission Date: 20091009
  Serious: Yes (Life-Threatening, Hospitalization)
  Sender: FDA-Public Use
  Company Number: None

PATIENT
  Age: 52 Year
  Sex: Female
  Weight: 70.3 kg

DRUGS (3)
  1. BUPROPION HCL [Suspect]
     Indication: DEPRESSION
     Dosage: 100 MG TWICE DAILY PO SEVERAL YEARS
     Route: 048
  2. DOXEPIN 20 MG [Suspect]
     Indication: DEPRESSION
     Dosage: 50 MG DAILY PO
     Route: 048
     Dates: start: 20090101, end: 20090616
  3. CELEXA [Concomitant]

REACTIONS (5)
  - CONVULSIVE THRESHOLD LOWERED [None]
  - FALL [None]
  - GRAND MAL CONVULSION [None]
  - LOSS OF CONSCIOUSNESS [None]
  - OVERDOSE [None]
